FAERS Safety Report 9104210 (Version 4)
Quarter: 2013Q2

REPORT INFORMATION
  Report Type: Spontaneous
  Country: CA (occurrence: CA)
  Receive Date: 20130219
  Receipt Date: 20130429
  Transmission Date: 20140414
  Serious: Yes (Other)
  Sender: FDA-Public Use
  Company Number: CA-PFIZER INC-2013058681

PATIENT
  Age: 33 Year
  Sex: Female
  Weight: 90 kg

DRUGS (4)
  1. ALESSE-21 [Suspect]
     Indication: CONTRACEPTION
     Dosage: 1 DF, 1X/DAY
     Dates: start: 20121120
  2. ALESSE-21 [Suspect]
     Indication: MENSTRUAL CYCLE MANAGEMENT
  3. NUTRASEA HP 3:1 [Concomitant]
     Indication: MAJOR DEPRESSION
     Dosage: 1.14 G, 4X/DAY IN MORNING AND EVENING
     Dates: start: 200705
  4. FOLIC ACID [Concomitant]
     Indication: PROPHYLAXIS
     Dosage: 1 MG, 1X/DAY AM
     Dates: start: 201207

REACTIONS (7)
  - Tooth abscess [Recovered/Resolved]
  - Gingivitis [Not Recovered/Not Resolved]
  - Oral candidiasis [Unknown]
  - Oral mucosa erosion [Unknown]
  - Gingival bleeding [Unknown]
  - Gingival pain [Unknown]
  - Nausea [Unknown]
